FAERS Safety Report 9313143 (Version 2)
Quarter: 2013Q3

REPORT INFORMATION
  Report Type: Spontaneous
  Country: US (occurrence: US)
  Receive Date: 20130528
  Receipt Date: 20130828
  Transmission Date: 20140515
  Serious: No
  Sender: FDA-Public Use
  Company Number: US-ABBOTT-13P-163-1076618-00

PATIENT
  Age: 50 Year
  Sex: Male
  Weight: 102.15 kg

DRUGS (5)
  1. ANDROGEL [Suspect]
     Indication: BLOOD TESTOSTERONE DECREASED
     Dosage: 2 PUMPS ONCE DAILY
     Route: 061
     Dates: start: 201301, end: 201303
  2. ANDROGEL [Suspect]
     Dosage: 4 PUMPS ONCE DAILY
     Route: 061
     Dates: start: 201303
  3. HYDROCHLOROTHIAZIDE [Concomitant]
     Indication: HYPERTENSION
  4. BENZAPRIL [Concomitant]
     Indication: HYPERTENSION
  5. MULTIVITAMIN [Concomitant]
     Indication: VITAMIN SUPPLEMENTATION

REACTIONS (2)
  - Pain in extremity [Not Recovered/Not Resolved]
  - Blood testosterone abnormal [Unknown]
